FAERS Safety Report 24096341 (Version 1)
Quarter: 2024Q3

REPORT INFORMATION
  Report Type: Spontaneous
  Country: US (occurrence: None)
  Receive Date: 20240715
  Receipt Date: 20240715
  Transmission Date: 20241016
  Serious: Yes (Death)
  Sender: Public
  Company Number: None

PATIENT
  Age: 91 Year
  Sex: Female

DRUGS (1)
  1. PROLIA [Suspect]
     Active Substance: DENOSUMAB
     Indication: Osteoporosis
     Dosage: 1 ML EVERY 6 MONTH SUBCUTANEOUS ?
     Route: 058
     Dates: start: 20220426

REACTIONS (1)
  - Death [None]

NARRATIVE: CASE EVENT DATE: 20240713
